FAERS Safety Report 12037028 (Version 1)
Quarter: 2016Q1

REPORT INFORMATION
  Report Type: Spontaneous
  Country: US (occurrence: US)
  Receive Date: 20160208
  Receipt Date: 20160208
  Transmission Date: 20160526
  Serious: Yes (Hospitalization)
  Sender: FDA-Public Use
  Company Number: US-BEH-2016057780

PATIENT
  Sex: Male
  Weight: 26 kg

DRUGS (15)
  1. HIZENTRA [Suspect]
     Active Substance: HUMAN IMMUNOGLOBULIN G
     Indication: HYPOGAMMAGLOBULINAEMIA
     Dates: start: 20160104
  2. LIDOCAINE/PRILOCAINE [Concomitant]
  3. EPIPEN JR [Concomitant]
     Active Substance: EPINEPHRINE
  4. CHOLESTYRAMINE. [Concomitant]
     Active Substance: CHOLESTYRAMINE
  5. HIZENTRA [Suspect]
     Active Substance: HUMAN IMMUNOGLOBULIN G
     Indication: HYPOGAMMAGLOBULINAEMIA
     Route: 058
     Dates: start: 20101028
  6. DEXTROSE. [Concomitant]
     Active Substance: DEXTROSE
  7. METRONIDAZOLE. [Concomitant]
     Active Substance: METRONIDAZOLE
  8. DIPHENHYDRAMINE. [Concomitant]
     Active Substance: DIPHENHYDRAMINE
  9. HIZENTRA [Suspect]
     Active Substance: HUMAN IMMUNOGLOBULIN G
     Indication: MALABSORPTION
     Route: 058
     Dates: start: 20101028
  10. DIPHENHYDRAMINE. [Concomitant]
     Active Substance: DIPHENHYDRAMINE
  11. VITAMIN D [Concomitant]
     Active Substance: CHOLECALCIFEROL
  12. ALBUMIN [Concomitant]
     Active Substance: ALBUMIN (HUMAN)
  13. VITAMIN D2 [Concomitant]
     Active Substance: ERGOCALCIFEROL
  14. CITRIC ACID [Concomitant]
     Active Substance: CITRIC ACID MONOHYDRATE
  15. ACETAMINOPHEN. [Concomitant]
     Active Substance: ACETAMINOPHEN

REACTIONS (3)
  - Candida sepsis [Unknown]
  - Influenza [Unknown]
  - Upper respiratory tract infection [Unknown]

NARRATIVE: CASE EVENT DATE: 2015
